FAERS Safety Report 7360834-0 (Version None)
Quarter: 2011Q1

REPORT INFORMATION
  Report Type: 
  Country: None (occurrence: None)
  Receive Date: 20110318
  Receipt Date: 20110309
  Transmission Date: 20110831
  Serious: No
  Sender: FDA-Public Use
  Company Number: DE-ACTELION-A-CH2010-42030

PATIENT
  Sex: Male
  Weight: 103 kg

DRUGS (8)
  1. METHOTREXATE [Concomitant]
  2. ASPIRIN [Concomitant]
  3. PANTOZOL [Concomitant]
  4. TRACLEER [Suspect]
     Indication: SKIN ULCER
     Dosage: 125 MG, BID
     Route: 048
  5. TRACLEER [Suspect]
     Dosage: 93.75 MG, BID
     Route: 048
     Dates: start: 20080915
  6. FOLIC ACID [Concomitant]
  7. ENAHEXAL [Concomitant]
  8. ARAVA [Concomitant]

REACTIONS (4)
  - PULMONARY VASCULAR RESISTANCE ABNORMALITY [None]
  - COUGH [None]
  - RIGHT VENTRICULAR FAILURE [None]
  - N-TERMINAL PROHORMONE BRAIN NATRIURETIC PEPTIDE [None]
